FAERS Safety Report 22259881 (Version 1)
Quarter: 2023Q2

REPORT INFORMATION
  Report Type: Spontaneous
  Country: IT (occurrence: IT)
  Receive Date: 20230427
  Receipt Date: 20230427
  Transmission Date: 20230721
  Serious: Yes (Other)
  Sender: FDA-Public Use
  Company Number: IT-AMGEN-ITASP2023069405

PATIENT
  Age: 61 Year
  Sex: Female

DRUGS (9)
  1. OTEZLA [Suspect]
     Active Substance: APREMILAST
     Indication: Psoriatic arthropathy
     Dosage: 30 MILLIGRAM, BID
     Route: 048
     Dates: start: 20211221, end: 20230307
  2. CHOLECALCIFEROL [Concomitant]
     Active Substance: CHOLECALCIFEROL
     Dosage: 1 DOSAGE FORM (25000) VIAL PER 15 DAYS
     Route: 048
  3. Ezevast [Concomitant]
     Dosage: 10 + 20 MG 1 TABLET PER DAY
     Route: 048
  4. LERCANIDIPINE HYDROCHLORIDE [Concomitant]
     Active Substance: LERCANIDIPINE HYDROCHLORIDE
     Dosage: 1 DOSAGE FORM, QD
     Route: 048
  5. DICLOFENAC [Concomitant]
     Active Substance: DICLOFENAC
     Dosage: GLUTEAL PATCH FOR 2-3 DAYS
     Route: 062
  6. ESOMEPRAZOLE [Concomitant]
     Active Substance: ESOMEPRAZOLE
     Dosage: 1 DOSAGE FORM, BID
     Route: 048
  7. Incoves [Concomitant]
     Dosage: 5 MILLIGRAM 1 TABLET PER DAY
     Route: 048
  8. ISONIAZID [Concomitant]
     Active Substance: ISONIAZID
     Dosage: 200 MG 1TABLET PLUS 1/2 TABLET/DAY
     Route: 048
  9. MICARDIS [Concomitant]
     Active Substance: TELMISARTAN
     Dosage: 40 MILLIGRAM 1 TABLET PER DAY
     Route: 048

REACTIONS (1)
  - Hepatotoxicity [Unknown]

NARRATIVE: CASE EVENT DATE: 20220422
